FAERS Safety Report 11055197 (Version 1)
Quarter: 2015Q2

REPORT INFORMATION
  Report Type: Spontaneous
  Country: US (occurrence: US)
  Receive Date: 20150422
  Receipt Date: 20150422
  Transmission Date: 20150821
  Serious: Yes (Other)
  Sender: FDA-Public Use
  Company Number: US-SA-2015SA022802

PATIENT
  Sex: Female

DRUGS (20)
  1. AVASTIN [Concomitant]
     Active Substance: BEVACIZUMAB
     Dosage: 1 MONTHLY OR AS DIRECTED
  2. FIORICET [Concomitant]
     Active Substance: ACETAMINOPHEN\BUTALBITAL\CAFFEINE
     Indication: HEADACHE
     Dosage: EVERY SIX HOUR P.R.N?50/325/40
     Route: 048
  3. TRIAMCINOLONE [Concomitant]
     Active Substance: TRIAMCINOLONE
     Indication: RASH PRURITIC
     Dosage: P.R.N.
  4. TIKOSYN [Concomitant]
     Active Substance: DOFETILIDE
     Dosage: STRENGTH: 500 MCG (0.5 MG)
  5. OMEPRAZOLE. [Concomitant]
     Active Substance: OMEPRAZOLE
  6. NITROLINGUAL [Concomitant]
     Active Substance: NITROGLYCERIN
     Indication: CHEST PAIN
     Dosage: STRENGTH: 0.4 MG, 1 TO 2 SPRAYS FOR A MAXIMUM OF 3 SPRAYS WITHIN 15 MINUTES PRN
     Route: 060
  7. CLONAZEPAM. [Concomitant]
     Active Substance: CLONAZEPAM
     Indication: ANXIETY
     Dosage: UPTO TWICE DAILY P.R.N.
  8. ARTIFICIAL TEARS [Concomitant]
     Active Substance: GLYCERIN\HYPROMELLOSES\POLYETHYLENE GLYCOL 400
     Dosage: LUBRICATING SOLUTION 2 DROPS TO BOTH EYES P.R.N. DRY EYES
  9. SPIRONOLACTONE. [Concomitant]
     Active Substance: SPIRONOLACTONE
  10. WARFARIN [Concomitant]
     Active Substance: WARFARIN
  11. METOPROLOL [Concomitant]
     Active Substance: METOPROLOL
  12. VITAMIN B COMPLEX [Concomitant]
     Active Substance: CYANOCOBALAMIN\DEXPANTHENOL\NIACINAMIDE\PYRIDOXINE HYDROCHLORIDE\RIBOFLAVIN 5^-PHOSPHATE SODIUM\THIAMINE HYDROCHLORIDE\VITAMIN B COMPLEX
  13. OXYGEN. [Concomitant]
     Active Substance: OXYGEN
     Dosage: AT 2/L WHILE ON CPAP AT NIGHT
  14. LEVOTHYROXINE [Concomitant]
     Active Substance: LEVOTHYROXINE
  15. SIMVASTATIN. [Concomitant]
     Active Substance: SIMVASTATIN
     Dosage: 90-DAY-SUPPLY
  16. LOVENOX [Suspect]
     Active Substance: ENOXAPARIN SODIUM
     Route: 065
  17. ASPIRIN. [Concomitant]
     Active Substance: ASPIRIN
     Dosage: OTC ENTERIC COATED
  18. VITAMIN D [Concomitant]
     Active Substance: CHOLECALCIFEROL
  19. CYANOCOBALAMIN. [Concomitant]
     Active Substance: CYANOCOBALAMIN
     Dosage: 1 CC INJECTION TWICE MONTHLY
  20. PULMICORT FLEXHALER [Concomitant]
     Active Substance: BUDESONIDE
     Dosage: STRENGTH: 180MCG DOSE:2 PUFF(S)
     Route: 048

REACTIONS (2)
  - Rash erythematous [Unknown]
  - Haemorrhage [Unknown]
